FAERS Safety Report 5134459-1 (Version None)
Quarter: 2006Q4

REPORT INFORMATION
  Report Type: 
  Country: None (occurrence: None)
  Receive Date: 20061025
  Receipt Date: 20061016
  Transmission Date: 20070319
  Serious: Yes (Hospitalization)
  Sender: FDA-Public Use
  Company Number: FR-AVENTIS-200613621FR

PATIENT
  Age: 15 Year
  Sex: Male
  Weight: 58 kg

DRUGS (21)
  1. FLAGYL [Suspect]
     Dates: start: 20060710, end: 20060902
  2. ARACYTINE [Suspect]
     Dates: end: 20060830
  3. ASPARAGINASE [Suspect]
     Route: 042
     Dates: start: 20060623, end: 20060629
  4. DAUNORUBICIN HCL [Suspect]
     Dates: start: 20060618, end: 20060701
  5. AMBISOME [Suspect]
     Dates: end: 20060818
  6. VINCRISTINE [Suspect]
     Dates: start: 20060618, end: 20060701
  7. CIFLOX                             /00697201/ [Concomitant]
  8. FORTUM                             /00559701/ [Concomitant]
  9. AMIKLIN                            /00391001/ [Concomitant]
  10. VANCOMYCIN [Concomitant]
  11. TIENAM [Concomitant]
  12. ZANTAC [Concomitant]
  13. ZOPHREN                            /00955301/ [Concomitant]
  14. LOXEN [Concomitant]
  15. BACTRIM [Concomitant]
  16. VITAMIN B1 AND B6 [Concomitant]
  17. NEXIUM [Concomitant]
  18. NUBAIN                             /00534801/ [Concomitant]
  19. SPASFON                            /00934601/ [Concomitant]
  20. VISCERALGINE                       /00120602/ [Concomitant]
  21. MORPHINE [Concomitant]

REACTIONS (3)
  - BURNING SENSATION [None]
  - ERYTHEMA [None]
  - NEUROPATHY [None]
